FAERS Safety Report 10874925 (Version 1)
Quarter: 2015Q1

REPORT INFORMATION
  Report Type: Report from Study
  Country: US (occurrence: US)
  Receive Date: 20150227
  Receipt Date: 20150227
  Transmission Date: 20150721
  Serious: Yes (Hospitalization)
  Sender: FDA-Public Use
  Company Number: US-TEVA-542779USA

PATIENT
  Age: 63 Year
  Sex: Male
  Weight: 91 kg

DRUGS (17)
  1. FLUOROURACIL. [Suspect]
     Active Substance: FLUOROURACIL
     Indication: PANCREATIC CARCINOMA
     Dosage: 28.5714 MG/M2 DAILY; CYCLE 1
     Route: 040
     Dates: start: 20141113, end: 2014
  2. DEXAMETHASONE. [Concomitant]
     Active Substance: DEXAMETHASONE
     Dates: start: 20141106
  3. ONDANSETRON [Concomitant]
     Active Substance: ONDANSETRON
     Dates: start: 20141106
  4. IRINOTECAN [Suspect]
     Active Substance: IRINOTECAN
     Indication: PANCREATIC CARCINOMA
     Dosage: 12.8571 MG/M2 DAILY; CYCLE 1
     Route: 042
     Dates: start: 20141113, end: 2014
  5. DEXAMETHASONE. [Concomitant]
     Active Substance: DEXAMETHASONE
     Dates: start: 20141113
  6. FLUOROURACIL. [Suspect]
     Active Substance: FLUOROURACIL
     Dosage: 22.8571 MG/M2 DAILY; CYCLE 2
     Route: 040
     Dates: start: 20141204, end: 20141218
  7. FLUOROURACIL. [Suspect]
     Active Substance: FLUOROURACIL
     Dosage: 171.4286 MG/M2 DAILY; CIVI
     Route: 041
     Dates: start: 20141113, end: 20141218
  8. LIDOCAINE W/PRILOCAINE [Concomitant]
     Dates: start: 20141106
  9. PROCHLORPERAZINE MALEATE. [Concomitant]
     Active Substance: PROCHLORPERAZINE MALEATE
     Dates: start: 20141106
  10. COMPAZINE [Concomitant]
     Active Substance: PROCHLORPERAZINE MALEATE
     Route: 065
     Dates: start: 20141113
  11. IRINOTECAN [Suspect]
     Active Substance: IRINOTECAN
     Dosage: CYCLE 2
     Route: 042
     Dates: start: 20141204, end: 20141218
  12. OXALIPLATIN INJECTION [Suspect]
     Active Substance: OXALIPLATIN
     Indication: PANCREATIC CARCINOMA
     Dosage: 6.0714 MG/M2 DAILY;
     Route: 042
     Dates: start: 20141113, end: 20141218
  13. ONDANSETRON [Concomitant]
     Active Substance: ONDANSETRON
     Dates: start: 20141113
  14. OXYCODONE HYDROCHLORIDE. [Concomitant]
     Active Substance: OXYCODONE HYDROCHLORIDE
     Route: 065
     Dates: start: 20141024
  15. LEUCOVORIN [Suspect]
     Active Substance: LEUCOVORIN
     Indication: PANCREATIC CARCINOMA
     Dosage: 28.5714 MG/M2 DAILY;
     Route: 042
     Dates: start: 20141113, end: 20141218
  16. CREON [Concomitant]
     Active Substance: PANCRELIPASE AMYLASE\PANCRELIPASE LIPASE\PANCRELIPASE PROTEASE
     Dates: start: 20141024
  17. ALPRAZOLAM. [Concomitant]
     Active Substance: ALPRAZOLAM
     Dates: start: 20141103

REACTIONS (1)
  - Febrile neutropenia [Recovered/Resolved]

NARRATIVE: CASE EVENT DATE: 20141230
